FAERS Safety Report 6701012-5 (Version None)
Quarter: 2010Q2

REPORT INFORMATION
  Report Type: 
  Country: None (occurrence: None)
  Receive Date: 20100428
  Receipt Date: 20100419
  Transmission Date: 20101027
  Serious: Yes (Hospitalization)
  Sender: FDA-Public Use
  Company Number: US-WYE-H14663610

PATIENT
  Sex: Female
  Weight: 55.4 kg

DRUGS (9)
  1. SIROLIMUS [Suspect]
     Indication: PROPHYLAXIS AGAINST TRANSPLANT REJECTION
     Route: 048
     Dates: start: 20091218, end: 20100101
  2. SIROLIMUS [Suspect]
     Route: 048
     Dates: start: 20100101
  3. PREDNISONE [Concomitant]
     Dosage: 5 MG ^SID^
     Route: 048
  4. OS-CAL + D [Concomitant]
     Route: 048
  5. TRAZODONE HCL [Concomitant]
     Route: 048
  6. XANAX [Concomitant]
     Route: 048
  7. METOPROLOL TARTRATE [Concomitant]
     Route: 048
  8. PROGRAF [Concomitant]
     Route: 048
  9. MAGNESIUM OXIDE [Concomitant]
     Route: 048

REACTIONS (3)
  - ACCIDENTAL OVERDOSE [None]
  - DRUG TOXICITY [None]
  - INAPPROPRIATE SCHEDULE OF DRUG ADMINISTRATION [None]
